FAERS Safety Report 7144943-7 (Version None)
Quarter: 2010Q4

REPORT INFORMATION
  Report Type: 
  Country: None (occurrence: None)
  Receive Date: 20101122
  Receipt Date: 20101004
  Transmission Date: 20110411
  Serious: Yes (Other)
  Sender: FDA-Public Use
  Company Number: 2010SP051363

PATIENT
  Age: 67 Year
  Sex: Female
  Weight: 77 kg

DRUGS (4)
  1. ORMIGREIN (ORMIGREIN /01755201/) [Suspect]
     Indication: MIGRAINE
     Dosage: PO
     Route: 048
     Dates: start: 20080101, end: 20100924
  2. FLUOXETINE [Concomitant]
  3. ALPRAZOLAM [Concomitant]
  4. LEXOTAN [Concomitant]

REACTIONS (1)
  - DRUG DEPENDENCE [None]
